FAERS Safety Report 8974280 (Version 4)
Quarter: 2013Q3

REPORT INFORMATION
  Report Type: Spontaneous
  Country: US (occurrence: None)
  Receive Date: 20121212
  Receipt Date: 20130702
  Transmission Date: 20140515
  Serious: Yes (Hospitalization)
  Sender: FDA-Public Use
  Company Number: AUR-APL-2012-05246

PATIENT
  Age: 78 Year
  Sex: Female
  Weight: 56.24 kg

DRUGS (14)
  1. AMLODIPINE (AMLODIPINE) [Suspect]
     Indication: HYPERTENSION
     Route: 048
     Dates: start: 20121114, end: 20121121
  2. LISINOPRIL (LISINOPRIL) [Suspect]
     Indication: HYPERTENSION
     Dosage: 20 MG (10 MG, 2 IN 1 D)
     Route: 048
     Dates: end: 20121024
  3. METOPROLOL (METOPROLOL) [Suspect]
     Indication: HYPERTENSION
     Dosage: 50 MG (25 MG, 2 IN 1 D)
     Route: 048
     Dates: end: 20121024
  4. UNSPECIFIED DRUG [Suspect]
     Indication: DEMENTIA ALZHEIMER^S TYPE
     Dosage: BLINDED DOSE, INTRAMUSCULAR
     Route: 030
     Dates: start: 20120823, end: 20120823
  5. ARICEPT [Suspect]
     Indication: DEMENTIA ALZHEIMER^S TYPE
     Route: 048
     Dates: start: 20070605, end: 20121121
  6. PREDNISOLONE ACETATE (PREDNISOLONE ACETATE) [Concomitant]
  7. ALBUTEROL (SALBUTAMOL) [Concomitant]
  8. ALENDRONATE SODIUM [Concomitant]
  9. BROMDAY (BROMFENAC) [Concomitant]
  10. SIMVASTATIN (SIMVASTATIN) [Concomitant]
  11. VIGAMOX (MOXIFLOXACIN HYDROCHLORIDE) [Concomitant]
  12. SINEMET (SINEMET) [Concomitant]
  13. CALTRATE [Concomitant]
  14. FLOVENT (FLUTICASONE PROPIONATE) [Concomitant]

REACTIONS (9)
  - Syncope [None]
  - Bradycardia [None]
  - Viral upper respiratory tract infection [None]
  - Nausea [None]
  - Pallor [None]
  - Nasopharyngitis [None]
  - Loss of consciousness [None]
  - Vomiting [None]
  - Ankle fracture [None]
